FAERS Safety Report 9228212 (Version 1)
Quarter: 2013Q2

REPORT INFORMATION
  Report Type: Spontaneous
  Country: IT (occurrence: IT)
  Receive Date: 20130412
  Receipt Date: 20130412
  Transmission Date: 20140414
  Serious: Yes (Hospitalization)
  Sender: FDA-Public Use
  Company Number: IT-TEVA-396752ISR

PATIENT
  Age: 66 Year
  Sex: Male

DRUGS (5)
  1. GABAPENTIN [Suspect]
     Indication: DIABETIC NEUROPATHY
     Dosage: 600 MILLIGRAM DAILY;
     Route: 048
     Dates: start: 20130328, end: 20130330
  2. CARDICOR [Concomitant]
     Indication: CARDIAC FAILURE
     Dosage: 7.5MG
  3. TRENTAL [Concomitant]
     Indication: DIABETIC VASCULAR DISORDER
     Dosage: 400MG MODIFIED RELEASE
  4. AMLODIPINA BESILATO [Concomitant]
     Indication: HYPERTENSION
  5. FUROSEMIDE [Concomitant]
     Indication: RENAL FAILURE CHRONIC

REACTIONS (3)
  - Asthenia [Recovering/Resolving]
  - Hypotension [Recovering/Resolving]
  - Rhabdomyolysis [Recovering/Resolving]
